FAERS Safety Report 8605898-9 (Version None)
Quarter: 2012Q3

REPORT INFORMATION
  Report Type: 
  Country: None (occurrence: None)
  Receive Date: 20120820
  Receipt Date: 20120814
  Transmission Date: 20120928
  Serious: Yes (Other)
  Sender: FDA-Public Use
  Company Number: GB-GLAXOSMITHKLINE-B0822726A

PATIENT
  Age: 30 Year
  Sex: Female

DRUGS (2)
  1. VENTOLIN [Suspect]
  2. AMINOPHYLLIN [Concomitant]

REACTIONS (8)
  - MALAISE [None]
  - HALLUCINATION [None]
  - PHARYNGEAL OEDEMA [None]
  - PYREXIA [None]
  - RASH PRURITIC [None]
  - DYSPNOEA [None]
  - DIZZINESS [None]
  - OEDEMA MOUTH [None]
